FAERS Safety Report 6646124-X (Version None)
Quarter: 2010Q2

REPORT INFORMATION
  Report Type: 
  Country: None (occurrence: None)
  Receive Date: 20100323
  Receipt Date: 20100311
  Transmission Date: 20101027
  Serious: Yes (Other)
  Sender: FDA-Public Use
  Company Number: US-JNJFOC-20091103228

PATIENT
  Sex: Female
  Weight: 12.7 kg

DRUGS (4)
  1. CONCENTRATED TYLENOL INFANT DROPS [Suspect]
     Indication: PROPHYLAXIS
     Route: 048
  2. CONCENTRATED TYLENOL INFANT DROPS [Suspect]
     Route: 048
  3. CHILDREN'S TYLENOL SUSPENSION [Suspect]
     Indication: PROPHYLAXIS
     Route: 048
  4. CHILDREN'S TYLENOL SUSPENSION [Suspect]
     Route: 048

REACTIONS (4)
  - DIARRHOEA HAEMORRHAGIC [None]
  - RASH [None]
  - TRANSMISSION OF AN INFECTIOUS AGENT VIA A MEDICINAL PRODUCT [None]
  - URINARY TRACT INFECTION [None]
